FAERS Safety Report 21702496 (Version 1)
Quarter: 2022Q4

REPORT INFORMATION
  Report Type: Spontaneous
  Country: US (occurrence: US)
  Receive Date: 20221208
  Receipt Date: 20221208
  Transmission Date: 20230113
  Serious: No
  Sender: FDA-Public Use
  Company Number: US-IBSA PHARMA INC.-2022IBS000020

PATIENT

DRUGS (5)
  1. TIROSINT [Suspect]
     Active Substance: LEVOTHYROXINE SODIUM
     Indication: Autoimmune thyroiditis
     Dosage: 100 ?G, 2 CAPSULES TWICE DAILY
     Route: 048
     Dates: end: 20220121
  2. TIROSINT [Suspect]
     Active Substance: LEVOTHYROXINE SODIUM
     Indication: Hypothyroidism
  3. TIROSINT [Suspect]
     Active Substance: LEVOTHYROXINE SODIUM
     Indication: Gitelman^s syndrome
  4. POTASSIUM [Concomitant]
     Active Substance: POTASSIUM
     Indication: Product used for unknown indication
     Dosage: 80 MEQ, QD
     Route: 042
  5. MAG                                /07370001/ [Concomitant]
     Indication: Product used for unknown indication
     Dosage: 3 G, QD
     Route: 042

REACTIONS (13)
  - Tinnitus [Recovered/Resolved]
  - Goitre [Recovered/Resolved]
  - Feeling abnormal [Recovered/Resolved]
  - Oxygen saturation abnormal [Recovered/Resolved]
  - Pulse abnormal [Recovered/Resolved]
  - Weight decreased [Recovered/Resolved]
  - Anxiety [Recovered/Resolved]
  - Dyspnoea [Recovered/Resolved]
  - Palpitations [Recovered/Resolved]
  - Blood thyroid stimulating hormone increased [Unknown]
  - Wrong technique in product usage process [Unknown]
  - Expired product administered [Unknown]
  - Product dose omission issue [Unknown]
